FAERS Safety Report 7581736-0 (Version None)
Quarter: 2011Q2

REPORT INFORMATION
  Report Type: 
  Country: None (occurrence: None)
  Receive Date: 20110629
  Receipt Date: 20110620
  Transmission Date: 20111010
  Serious: Yes (Hospitalization)
  Sender: FDA-Public Use
  Company Number: AU-ASTRAZENECA-2011SE37352

PATIENT
  Age: 63 Year
  Sex: Male

DRUGS (3)
  1. SUXAMETHONIUM [Suspect]
     Route: 042
     Dates: start: 20110128
  2. ALFENTANIL [Suspect]
     Dates: start: 20110128
  3. PROPOFOL [Suspect]
     Route: 042
     Dates: start: 20110128

REACTIONS (4)
  - BRONCHOSPASM [None]
  - TRYPTASE INCREASED [None]
  - ANAPHYLACTIC REACTION [None]
  - HYPOTENSION [None]
